FAERS Safety Report 5410923-2 (Version None)
Quarter: 2007Q3

REPORT INFORMATION
  Report Type: 
  Country: None (occurrence: None)
  Receive Date: 20070810
  Receipt Date: 20070731
  Transmission Date: 20080115
  Serious: Yes (Hospitalization)
  Sender: FDA-Public Use
  Company Number: CA-ASTRAZENECA-2007UW18651

PATIENT
  Age: 53 Year
  Sex: Female
  Weight: 60 kg

DRUGS (10)
  1. SEROQUEL [Suspect]
     Indication: GENERALISED ANXIETY DISORDER
     Route: 048
     Dates: start: 20060907, end: 20070612
  2. SEROQUEL [Suspect]
     Indication: ANXIETY
     Route: 048
     Dates: start: 20070615
  3. SEROQUEL [Suspect]
     Route: 048
     Dates: start: 20070613, end: 20070614
  4. TYLENOL EXTRA STRENGTH [Concomitant]
     Indication: MIGRAINE
     Route: 048
     Dates: start: 20060501
  5. FISH OIL [Concomitant]
     Indication: PROPHYLAXIS
     Route: 048
     Dates: start: 20051201
  6. VITAMIN CAP [Concomitant]
     Indication: SUPPLEMENTATION THERAPY
     Route: 048
     Dates: start: 20051201
  7. REMERON [Concomitant]
     Route: 048
     Dates: start: 20060329
  8. CIPRALEX [Concomitant]
     Route: 048
     Dates: start: 20060406, end: 20060408
  9. CIPRALEX [Concomitant]
     Route: 048
     Dates: start: 20060409, end: 20060411
  10. TYLENOL FLU [Concomitant]
     Route: 048
     Dates: start: 20070524, end: 20070609

REACTIONS (1)
  - CHOLELITHIASIS [None]
